FAERS Safety Report 8077197-8 (Version None)
Quarter: 2012Q1

REPORT INFORMATION
  Report Type: 
  Country: None (occurrence: None)
  Receive Date: 20120127
  Receipt Date: 20120116
  Transmission Date: 20120608
  Serious: Yes (Other)
  Sender: FDA-Public Use
  Company Number: SE-ROCHE-1032154

PATIENT

DRUGS (1)
  1. ISOTRETINOIN [Suspect]
     Indication: ACNE

REACTIONS (6)
  - SUICIDE ATTEMPT [None]
  - DEPRESSION [None]
  - SLEEP DISORDER [None]
  - SUICIDAL IDEATION [None]
  - DISTURBANCE IN ATTENTION [None]
  - ANXIETY [None]
